FAERS Safety Report 24753178 (Version 1)
Quarter: 2024Q4

REPORT INFORMATION
  Report Type: Spontaneous
  Country: US (occurrence: US)
  Receive Date: 20241219
  Receipt Date: 20241219
  Transmission Date: 20250114
  Serious: Yes (Other)
  Sender: AMGEN
  Company Number: US-AMGEN-USASP2024245822

PATIENT

DRUGS (7)
  1. PEGFILGRASTIM [Suspect]
     Active Substance: PEGFILGRASTIM
     Indication: Plasma cell myeloma refractory
     Dosage: 6 MILLIGRAM, ON DAY 6
     Route: 065
  2. BORTEZOMIB [Concomitant]
     Active Substance: BORTEZOMIB
  3. LENALIDOMIDE [Concomitant]
     Active Substance: LENALIDOMIDE
  4. HYDROXYCHLOROQUINE SULFATE [Concomitant]
     Active Substance: HYDROXYCHLOROQUINE SULFATE
     Dosage: UNK, DOSE LEVELS RANGING FROM, CYCLE 1 DAY 5 AND CONTINUED DAILY BY MOUTH
     Route: 048
  5. CYCLOPHOSPHAMIDE [Concomitant]
     Active Substance: CYCLOPHOSPHAMIDE
     Dosage: 300 MILLIGRAM/SQ. METER, QD, /DAY
  6. DEXAMETHASONE [Concomitant]
     Active Substance: DEXAMETHASONE
     Dosage: 40 MILLIGRAM, BY MOUTH WERE GIVEN ON DAYS 1-4 OF A 28 DAY CYCLE
     Route: 048
  7. RAPAMYCIN [Concomitant]
     Active Substance: SIROLIMUS
     Dosage: 12 MILLIGRAM, LOADING (ON DAY -2) AND 4MG DAILY DOSES BY MOUTH WERE GIVEN ON DAYS 1 TO 4 A

REACTIONS (13)
  - Plasma cell myeloma [Unknown]
  - Neutropenia [Unknown]
  - Staphylococcal bacteraemia [Unknown]
  - Device related bacteraemia [Unknown]
  - Electrocardiogram QT prolonged [Unknown]
  - Thrombocytopenia [Unknown]
  - Therapy non-responder [Unknown]
  - Lymphopenia [Unknown]
  - Diarrhoea [Unknown]
  - Constipation [Unknown]
  - Abdominal discomfort [Unknown]
  - Toxicity to various agents [Unknown]
  - Therapy partial responder [Unknown]
